FAERS Safety Report 9805394 (Version 2)
Quarter: 2014Q1

REPORT INFORMATION
  Report Type: Spontaneous
  Country: US (occurrence: US)
  Receive Date: 20140109
  Receipt Date: 20140109
  Transmission Date: 20141002
  Serious: Yes (Other)
  Sender: FDA-Public Use
  Company Number: US-PFIZER INC-2013307331

PATIENT
  Age: 87 Year
  Sex: Male

DRUGS (2)
  1. INLYTA [Suspect]
     Indication: RENAL CANCER
     Dosage: 5 MG, 2X/DAY
     Route: 048
     Dates: start: 201307, end: 201310
  2. ASPIRIN [Concomitant]
     Dosage: CHRONIC

REACTIONS (1)
  - Intestinal haemorrhage [Recovered/Resolved]
